FAERS Safety Report 24820498 (Version 1)
Quarter: 2025Q1

REPORT INFORMATION
  Report Type: Other
  Country: US (occurrence: US)
  Receive Date: 20250108
  Receipt Date: 20250108
  Transmission Date: 20250408
  Serious: Yes (Hospitalization)
  Sender: B BRAUN
  Company Number: US-B.Braun Medical Inc.-2168678

PATIENT
  Age: 21 Year
  Sex: Male

DRUGS (1)
  1. HEPARIN SODIUM IN DEXTROSE [Suspect]
     Active Substance: HEPARIN SODIUM
     Indication: Hepatic vein thrombosis

REACTIONS (1)
  - Drug ineffective [Unknown]
